FAERS Safety Report 25330623 (Version 1)
Quarter: 2025Q2

REPORT INFORMATION
  Report Type: Spontaneous
  Country: US (occurrence: None)
  Receive Date: 20250516
  Receipt Date: 20250516
  Transmission Date: 20250717
  Serious: Yes (Life-Threatening)
  Sender: FDA-CTU
  Company Number: None

PATIENT
  Age: 48 Year
  Sex: Male

DRUGS (2)
  1. TAVNEOS [Suspect]
     Active Substance: AVACOPAN
     Dosage: FREQUENCY : TWICE A DAY;?
     Route: 048
     Dates: start: 20250319
  2. RITUXAN [Concomitant]
     Active Substance: RITUXIMAB
     Dates: start: 20250319

REACTIONS (2)
  - Cardiac disorder [None]
  - Infusion related reaction [None]

NARRATIVE: CASE EVENT DATE: 20250516
